FAERS Safety Report 9798773 (Version 1)
Quarter: 2013Q4

REPORT INFORMATION
  Report Type: Spontaneous
  Country: US (occurrence: None)
  Receive Date: 20131231
  Receipt Date: 20131231
  Transmission Date: 20140711
  Serious: Yes (Other)
  Sender: FDA-Public Use
  Company Number: AUR-APL-2013-10889

PATIENT
  Age: 61 Year
  Sex: Female
  Weight: 81 kg

DRUGS (2)
  1. PAROXETINE (PAROXETINE) [Suspect]
     Indication: DEPRESSION
     Route: 048
     Dates: start: 20081105, end: 20130820
  2. SIMVASTATIN (SIMVASTATIN) [Concomitant]

REACTIONS (2)
  - Alopecia [None]
  - Withdrawal syndrome [None]
